FAERS Safety Report 11576789 (Version 1)
Quarter: 2015Q3

REPORT INFORMATION
  Report Type: Spontaneous
  Country: US (occurrence: US)
  Receive Date: 20150916
  Receipt Date: 20150916
  Transmission Date: 20151125
  Serious: No
  Sender: FDA-Public Use
  Company Number: US-ELI_LILLY_AND_COMPANY-US201305008277

PATIENT
  Sex: Female
  Weight: 89.34 kg

DRUGS (10)
  1. LANTUS [Concomitant]
     Active Substance: INSULIN GLARGINE
  2. GLUCOSAMINE                        /00943602/ [Concomitant]
  3. LISINOPRIL. [Concomitant]
     Active Substance: LISINOPRIL
     Dosage: 2.5 MG, UNKNOWN
  4. HUMALOG [Suspect]
     Active Substance: INSULIN LISPRO
     Indication: TYPE 1 DIABETES MELLITUS
     Dosage: UNK, QID
  5. HUMALOG [Suspect]
     Active Substance: INSULIN LISPRO
     Dosage: UNK, QID
  6. VERAMYST [Concomitant]
     Active Substance: FLUTICASONE FUROATE
  7. MULTIVITAMIN                       /00097801/ [Concomitant]
     Active Substance: VITAMINS
  8. VITAMIN D                          /00107901/ [Concomitant]
     Active Substance: ERGOCALCIFEROL
  9. CALTRATE WITH VITAMIN D [Concomitant]
     Active Substance: CALCIUM CARBONATE\CHOLECALCIFEROL
  10. ZYRTEC [Concomitant]
     Active Substance: CETIRIZINE HYDROCHLORIDE
     Dosage: 10 MG, UNKNOWN

REACTIONS (3)
  - Visual impairment [Unknown]
  - Blood glucose increased [Unknown]
  - Underdose [Unknown]
